FAERS Safety Report 20956523 (Version 3)
Quarter: 2022Q3

REPORT INFORMATION
  Report Type: Spontaneous
  Country: CA (occurrence: CA)
  Receive Date: 20220614
  Receipt Date: 20220802
  Transmission Date: 20221027
  Serious: Yes (Hospitalization, Other)
  Sender: FDA-Public Use
  Company Number: None

PATIENT
  Age: 48 Year
  Sex: Female

DRUGS (9)
  1. MYCOPHENOLATE MOFETIL [Suspect]
     Active Substance: MYCOPHENOLATE MOFETIL
     Indication: Immunosuppression
     Route: 065
  2. TACROLIMUS [Suspect]
     Active Substance: TACROLIMUS
     Indication: Immunosuppression
     Route: 065
  3. SULFAMETHOXAZOLE\TRIMETHOPRIM [Suspect]
     Active Substance: SULFAMETHOXAZOLE\TRIMETHOPRIM
     Indication: Product used for unknown indication
     Route: 065
  4. AMPHOTERICIN B [Suspect]
     Active Substance: AMPHOTERICIN B
     Indication: Product used for unknown indication
  5. AZITHROMYCIN [Suspect]
     Active Substance: AZITHROMYCIN
     Indication: Product used for unknown indication
  6. CLINDAMYCIN HYDROCHLORIDE [Suspect]
     Active Substance: CLINDAMYCIN HYDROCHLORIDE
     Indication: Product used for unknown indication
  7. CLOXACILLIN [Suspect]
     Active Substance: CLOXACILLIN
     Indication: Product used for unknown indication
     Dosage: POWDER FOR SOLUTION INTRAVENOUS
  8. IMIPENEM [Suspect]
     Active Substance: IMIPENEM
     Indication: Achromobacter infection
  9. COLISTIN [Concomitant]
     Active Substance: COLISTIN
     Indication: Prophylaxis against transplant rejection

REACTIONS (10)
  - Aspergillus infection [Unknown]
  - Bacterial infection [Unknown]
  - Burkholderia cepacia complex infection [Unknown]
  - Drug hypersensitivity [Unknown]
  - Flavobacterium infection [Unknown]
  - Pulmonary sepsis [Unknown]
  - Staphylococcal infection [Unknown]
  - Rash maculo-papular [Unknown]
  - Respiratory distress [Unknown]
  - Type IV hypersensitivity reaction [Unknown]
